FAERS Safety Report 7015939-0 (Version None)
Quarter: 2010Q3

REPORT INFORMATION
  Report Type: 
  Country: None (occurrence: None)
  Receive Date: 20100927
  Receipt Date: 20100510
  Transmission Date: 20110219
  Serious: No
  Sender: FDA-Public Use
  Company Number: US-ASTRAZENECA-2010SE19998

PATIENT
  Age: 53 Year
  Sex: Female
  Weight: 55.3 kg

DRUGS (3)
  1. ARIMIDEX [Suspect]
     Indication: BREAST CANCER
     Route: 048
     Dates: start: 20090101, end: 20100101
  2. FASLODEX [Suspect]
     Indication: BREAST CANCER
     Route: 030
     Dates: start: 20100101, end: 20100301
  3. VITAMINS SUPPLEMENTS [Concomitant]
     Dosage: DAILY
     Route: 048

REACTIONS (2)
  - BONE PAIN [None]
  - HEPATIC ENZYME INCREASED [None]
